FAERS Safety Report 5093399-7 (Version None)
Quarter: 2006Q3

REPORT INFORMATION
  Report Type: 
  Country: None (occurrence: None)
  Receive Date: 20060828
  Receipt Date: 20060817
  Transmission Date: 20061208
  Serious: Yes (Hospitalization, Other)
  Sender: FDA-Public Use
  Company Number: 2006-DE-04300GD

PATIENT
  Sex: Male

DRUGS (1)
  1. MORPHINE [Suspect]
     Indication: BACK PAIN
     Dosage: 60 MG (NR), PO
     Route: 048

REACTIONS (9)
  - CONSTIPATION [None]
  - DEVICE MIGRATION [None]
  - DISTURBANCE IN ATTENTION [None]
  - DRUG INEFFECTIVE [None]
  - HYPERHIDROSIS [None]
  - LUMBAR SPINAL STENOSIS [None]
  - NAUSEA [None]
  - SCIATICA [None]
  - SPINAL COMPRESSION FRACTURE [None]
